FAERS Safety Report 17628464 (Version 1)
Quarter: 2020Q2

REPORT INFORMATION
  Report Type: Spontaneous
  Country: GB (occurrence: GB)
  Receive Date: 20200406
  Receipt Date: 20200406
  Transmission Date: 20200713
  Serious: No
  Sender: FDA-Public Use
  Company Number: GB-ALKEM LABORATORIES LIMITED-GB-ALKEM-2019-07532

PATIENT
  Age: 46 Year
  Sex: Male

DRUGS (1)
  1. QUETIAPINE FUMARATE. [Suspect]
     Active Substance: QUETIAPINE FUMARATE
     Indication: PRODUCT USED FOR UNKNOWN INDICATION
     Dosage: 600 MILLIGRAM, OD
     Route: 048

REACTIONS (5)
  - Tremor [Unknown]
  - Accidental overdose [Unknown]
  - Product dispensing error [Unknown]
  - Somnolence [Unknown]
  - Fatigue [Recovering/Resolving]
